FAERS Safety Report 10357642 (Version 1)
Quarter: 2014Q3

REPORT INFORMATION
  Report Type: Spontaneous
  Country: US (occurrence: US)
  Receive Date: 20140801
  Receipt Date: 20140801
  Transmission Date: 20150326
  Serious: Yes (Hospitalization, Other)
  Sender: FDA-Public Use
  Company Number: US-B.I. PHARMACEUTICALS,INC./RIDGEFIELD-2014-BI-34685BP

PATIENT
  Age: 74 Year
  Sex: Female
  Weight: 70 kg

DRUGS (15)
  1. PRADAXA [Suspect]
     Active Substance: DABIGATRAN ETEXILATE MESYLATE
     Indication: ATRIAL FIBRILLATION
     Dosage: 300 MG
     Route: 048
     Dates: start: 20101118, end: 20121213
  2. SYMBICORT [Concomitant]
     Active Substance: BUDESONIDE\FORMOTEROL FUMARATE DIHYDRATE
     Dosage: DOSE PER APPLICATION:164-1/2, DAILY DOSE: 2 INHALATION
     Route: 055
  3. METOPROLOL [Concomitant]
     Active Substance: METOPROLOL
     Dosage: 12.5 MG
     Route: 065
  4. AMOXICILLIN. [Concomitant]
     Active Substance: AMOXICILLIN
     Dosage: 1500 MG
     Route: 065
  5. NEXIUM [Concomitant]
     Active Substance: ESOMEPRAZOLE MAGNESIUM
     Indication: BARRETT^S OESOPHAGUS
     Dosage: 40 MG
     Route: 065
  6. TAMBOCOR [Concomitant]
     Active Substance: FLECAINIDE ACETATE
     Dosage: 100 MG
     Route: 065
  7. FOLIC ACID. [Concomitant]
     Active Substance: FOLIC ACID
     Dosage: 1 MG
     Route: 065
  8. CHLORPHENIRAMINE MALEATE. [Concomitant]
     Active Substance: CHLORPHENIRAMINE MALEATE
     Dosage: 4 MG
     Route: 065
  9. OSCAL [Concomitant]
     Active Substance: CALCIUM CARBONATE
     Dosage: DOSE PER APPLICATION AND DAILY DOSE: 500 D1
     Route: 065
  10. MAGNESIUM OXIDE. [Concomitant]
     Active Substance: MAGNESIUM OXIDE
     Dosage: 250 MG
     Route: 065
  11. MULTIVITAMIN [Concomitant]
     Active Substance: VITAMINS
     Dosage: 1 ANZ
     Route: 065
  12. METHOTREXATE [Concomitant]
     Active Substance: METHOTREXATE
     Dosage: 2.5 MG
     Route: 065
  13. MUCOMYST [Concomitant]
     Active Substance: ACETYLCYSTEINE
     Dosage: 300 MG
     Route: 065
  14. PREDNISONE. [Concomitant]
     Active Substance: PREDNISONE
     Dosage: 0.5 MG
     Route: 065
  15. ACTONEL [Concomitant]
     Active Substance: RISEDRONATE SODIUM
     Dosage: 5 MG
     Route: 065

REACTIONS (6)
  - Normochromic normocytic anaemia [Unknown]
  - Fall [Unknown]
  - Mental status changes [Recovered/Resolved]
  - Lower gastrointestinal haemorrhage [Recovered/Resolved]
  - Pulmonary haemorrhage [Unknown]
  - Humerus fracture [Unknown]

NARRATIVE: CASE EVENT DATE: 20121206
